FAERS Safety Report 18019941 (Version 6)
Quarter: 2021Q1

REPORT INFORMATION
  Report Type: Report from Study
  Country: CL (occurrence: CL)
  Receive Date: 20200714
  Receipt Date: 20210329
  Transmission Date: 20210419
  Serious: Yes (Death, Hospitalization)
  Sender: FDA-Public Use
  Company Number: CL-EISAI MEDICAL RESEARCH-EC-2020-077282

PATIENT
  Age: 68 Year
  Sex: Male
  Weight: 68.5 kg

DRUGS (12)
  1. OMEPRAZOLE. [Concomitant]
     Active Substance: OMEPRAZOLE
     Dates: start: 201901, end: 20200706
  2. EUTIROX [Concomitant]
     Active Substance: LEVOTHYROXINE SODIUM
     Dates: start: 201601
  3. LOPERAMIDE [Concomitant]
     Active Substance: LOPERAMIDE
     Dates: start: 20191007
  4. LENVATINIB [Suspect]
     Active Substance: LENVATINIB
     Indication: GASTRIC CANCER
     Route: 048
     Dates: start: 20190712, end: 20200701
  5. TRANSTEC [Concomitant]
     Active Substance: BUPRENORPHINE
     Dates: start: 20190718
  6. PEMBROLIZUMAB. [Suspect]
     Active Substance: PEMBROLIZUMAB
     Indication: GASTRIC CANCER
     Route: 041
     Dates: start: 20190712, end: 20200519
  7. PEMBROLIZUMAB. [Suspect]
     Active Substance: PEMBROLIZUMAB
     Route: 041
     Dates: start: 20200612, end: 20200612
  8. ATORVASTATIN [Concomitant]
     Active Substance: ATORVASTATIN
     Dates: start: 201601, end: 20200702
  9. DILATREND [Concomitant]
     Active Substance: CARVEDILOL
     Dates: start: 201601, end: 20200706
  10. TAREG?D [Concomitant]
     Active Substance: HYDROCHLOROTHIAZIDE\VALSARTAN
     Dates: start: 20191003, end: 20200706
  11. ASPIRIN. [Concomitant]
     Active Substance: ASPIRIN
     Dates: start: 201601
  12. CLONAZEPAM. [Concomitant]
     Active Substance: CLONAZEPAM
     Dates: start: 201601, end: 20200706

REACTIONS (1)
  - Acute coronary syndrome [Recovered/Resolved]

NARRATIVE: CASE EVENT DATE: 20200705
